FAERS Safety Report 21132839 (Version 2)
Quarter: 2022Q3

REPORT INFORMATION
  Report Type: Spontaneous
  Country: US (occurrence: US)
  Receive Date: 20220726
  Receipt Date: 20220819
  Transmission Date: 20221026
  Serious: No
  Sender: FDA-Public Use
  Company Number: US-PFIZER INC-PV202200029078

PATIENT
  Age: 69 Year
  Sex: Female

DRUGS (3)
  1. METHOTREXATE SODIUM [Suspect]
     Active Substance: METHOTREXATE SODIUM
     Dosage: UNK
  2. PREDNISONE [Suspect]
     Active Substance: PREDNISONE
     Dosage: 50 MG
     Dates: start: 20220714
  3. PREDNISONE [Suspect]
     Active Substance: PREDNISONE
     Dosage: 11 MG

REACTIONS (4)
  - Drug ineffective [Unknown]
  - Pain [Unknown]
  - Malaise [Unknown]
  - Fatigue [Unknown]
